FAERS Safety Report 11517142 (Version 4)
Quarter: 2016Q2

REPORT INFORMATION
  Report Type: Spontaneous
  Country: US (occurrence: US)
  Receive Date: 20150917
  Receipt Date: 20160513
  Transmission Date: 20160815
  Serious: Yes (Hospitalization, Other)
  Sender: FDA-Public Use
  Company Number: US-GLAXOSMITHKLINE INC.-US2015GSK132936

PATIENT
  Age: 67 Year
  Sex: Female

DRUGS (5)
  1. VELETRI [Suspect]
     Active Substance: EPOPROSTENOL
     Indication: PRODUCT USED FOR UNKNOWN INDICATION
     Dosage: UNK, U
     Dates: start: 2015, end: 2015
  2. FLOLAN [Suspect]
     Active Substance: EPOPROSTENOL SODIUM
     Indication: PULMONARY ARTERIAL HYPERTENSION
     Dosage: 5 NG/KG/MIN CONTINUOUS
     Route: 042
     Dates: start: 20070110
  3. WARFARIN [Concomitant]
     Active Substance: WARFARIN
  4. FLOLAN [Suspect]
     Active Substance: EPOPROSTENOL SODIUM
     Dosage: 52 NG/KG/MIN CONTINUOUS; CONCENTRATION: 75,00 1.5 MG
     Route: 042
     Dates: start: 20070110
  5. FLOLAN [Suspect]
     Active Substance: EPOPROSTENOL SODIUM
     Dosage: 52 NG/KG/MIN CONTINUOUS; CONCENTRATION: 75,000 NG/ML; PUMP RATE: 93 ML/DAY; VIAL STRENGTH: 1.5 MG
     Route: 042
     Dates: start: 20160202

REACTIONS (9)
  - White blood cell count increased [Unknown]
  - Polypectomy [Unknown]
  - Respiratory disorder [Unknown]
  - Rehabilitation therapy [Not Recovered/Not Resolved]
  - Colonoscopy [Recovered/Resolved]
  - Rectal haemorrhage [Unknown]
  - Hospitalisation [Recovered/Resolved]
  - Haemorrhage [Unknown]
  - Pyrexia [Unknown]

NARRATIVE: CASE EVENT DATE: 20150909
